FAERS Safety Report 8804172 (Version 1)
Quarter: 2012Q4

REPORT INFORMATION
  Report Type: 
  Country: US (occurrence: US)
  Receive Date: 20120924
  Receipt Date: 20120924
  Transmission Date: 20130627
  Serious: Yes (Hospitalization, Other)
  Sender: FDA-Public Use
  Company Number: US-BAYER-2012-097483

PATIENT
  Age: 32 Year
  Sex: Female
  Weight: 91 kg

DRUGS (17)
  1. YASMIN [Suspect]
     Indication: PREMENSTRUAL SYNDROME
     Dosage: UNK
     Dates: start: 2003
  2. YASMIN [Suspect]
     Indication: DYSMENORRHOEA
     Dosage: UNK
     Dates: start: 2004
  3. YASMIN [Suspect]
     Indication: POLYCYSTIC OVARIES
     Dosage: UNK
     Dates: start: 20070302, end: 20101025
  4. OCELLA [Suspect]
     Indication: PREMENSTRUAL SYNDROME
     Dosage: UNK
     Dates: start: 2003
  5. OCELLA [Suspect]
     Indication: DYSMENORRHOEA
     Dosage: UNK
     Dates: start: 2004
  6. OCELLA [Suspect]
     Indication: PREMENSTRUAL SYNDROME
     Dosage: UNK
     Dates: start: 20070302, end: 20101025
  7. YAZ [Suspect]
  8. PRISTIQ [Concomitant]
     Dosage: 50 mg, daily
     Dates: start: 20100413, end: 20101122
  9. TOPAMAX [Concomitant]
     Dosage: 25 mg, TID
     Dates: start: 20100521, end: 20101122
  10. SINGULAIR [Concomitant]
     Indication: MULTIPLE ALLERGIES
     Dosage: 10 mg, daily
     Route: 048
  11. CICLESONIDE [Concomitant]
     Indication: MULTIPLE ALLERGIES
     Dosage: 50 mcg; 2 sprays in each nostril every day
  12. ALLEGRA [Concomitant]
     Indication: MULTIPLE ALLERGIES
     Dosage: 180 mg, daily as needed
  13. MULTI-VITAMIN [Concomitant]
     Indication: VITAMIN SUPPLEMENTATION
     Dosage: 1 daily
  14. LAMICTAL [Concomitant]
     Dosage: Two-25 mg tablets each night
     Route: 048
     Dates: start: 20100702, end: 20101122
  15. ZYRTEC [Concomitant]
     Dosage: UNK
     Dates: start: 2000
  16. ULTRAM [Concomitant]
  17. IBUPROFEN [Concomitant]

REACTIONS (11)
  - Thrombophlebitis superficial [None]
  - Pain in extremity [None]
  - Pulmonary embolism [Recovered/Resolved]
  - Chest pain [Recovered/Resolved]
  - Dyspnoea [Recovered/Resolved]
  - Deep vein thrombosis [None]
  - Asthma [None]
  - Dyspnoea [None]
  - Chest pain [None]
  - Bipolar I disorder [None]
  - Anxiety [None]
